FAERS Safety Report 7569575-8 (Version None)
Quarter: 2011Q2

REPORT INFORMATION
  Report Type: 
  Country: None (occurrence: None)
  Receive Date: 20110624
  Receipt Date: 20110616
  Transmission Date: 20111010
  Serious: Yes (Life-Threatening, Hospitalization, Disabling)
  Sender: FDA-Public Use
  Company Number: JP-AMGEN-JPNSP2011021609

PATIENT
  Age: 64 Year
  Sex: Male
  Weight: 48.8 kg

DRUGS (11)
  1. LOXONIN [Concomitant]
     Dosage: 60 MG, 3X/DAY
     Route: 048
     Dates: start: 20050815
  2. PREDNISOLONE [Suspect]
     Dosage: UNK
     Route: 048
     Dates: start: 20050701
  3. ENBREL [Suspect]
     Indication: RHEUMATOID ARTHRITIS
     Dosage: 25 MG, 2X/WEEK
     Route: 058
     Dates: start: 20060829, end: 20080812
  4. PREDNISOLONE [Suspect]
     Dosage: 4 MG, 1X/DAY
     Route: 048
     Dates: start: 20090421
  5. STEROID ANTIBACTERIALS [Suspect]
     Indication: RHEUMATOID ARTHRITIS
     Dosage: UNK
     Route: 048
  6. FOSAMAX [Concomitant]
     Dosage: 35 MG, 1X/DAY
     Route: 048
     Dates: start: 20060106
  7. PREDNISOLONE [Suspect]
     Dosage: 5 MG, 1X/DAY
     Route: 048
     Dates: start: 20090324
  8. FAMOTIDINE [Concomitant]
     Dosage: 20 MG, 1X/DAY
     Route: 048
     Dates: start: 20050815
  9. ENBREL [Suspect]
     Dosage: 25 MG, 2X/DAY
     Dates: start: 20080909
  10. RHEUMATREX [Suspect]
     Dosage: 2 DF, WEEKLY
     Route: 048
     Dates: start: 20060101
  11. MUCOSTA [Concomitant]
     Dosage: 100 MG, 3X/DAY
     Route: 048
     Dates: start: 20050815

REACTIONS (2)
  - DIVERTICULITIS [None]
  - LARGE INTESTINE PERFORATION [None]
